FAERS Safety Report 11059037 (Version 1)
Quarter: 2015Q2

REPORT INFORMATION
  Report Type: Spontaneous
  Country: US (occurrence: None)
  Receive Date: 20150420
  Receipt Date: 20150420
  Transmission Date: 20150821
  Serious: No
  Sender: FDA-Public Use
  Company Number: AEGR001144

PATIENT
  Age: 77 Year
  Sex: Female

DRUGS (8)
  1. INSPRA (EPIERENONE) [Concomitant]
  2. VITAMIN D (COLECALCIFEROL) [Concomitant]
  3. JUXTAPID [Suspect]
     Active Substance: LOMITAPIDE MESYLATE
     Indication: TYPE IIA HYPERLIPIDAEMIA
     Route: 048
     Dates: start: 20131023
  4. COREG [Concomitant]
     Active Substance: CARVEDILOL
  5. FOLIC ACID. [Concomitant]
     Active Substance: FOLIC ACID
  6. RAMIPRIL. [Concomitant]
     Active Substance: RAMIPRIL
  7. CRESTOR [Concomitant]
     Active Substance: ROSUVASTATIN CALCIUM
  8. IMDUR (ISOSORBIDE MONONITRATE) [Concomitant]

REACTIONS (2)
  - Therapy cessation [None]
  - Diarrhoea [None]
